FAERS Safety Report 8125463-X (Version None)
Quarter: 2012Q1

REPORT INFORMATION
  Report Type: 
  Country: None (occurrence: None)
  Receive Date: 20120209
  Receipt Date: 20120203
  Transmission Date: 20120608
  Serious: Yes (Hospitalization, Other)
  Sender: FDA-Public Use
  Company Number: US-PFIZER INC-2011145159

PATIENT
  Sex: Female

DRUGS (21)
  1. ATIVAN [Concomitant]
     Indication: ANXIETY
     Dosage: UNK
     Dates: start: 20010101
  2. XANAX [Concomitant]
     Indication: ANXIETY
     Dosage: UNK
     Dates: start: 20050101, end: 20100101
  3. GLUCOPHAGE [Concomitant]
     Indication: DIABETES MELLITUS
     Dosage: UNK
     Dates: start: 20060101
  4. ALBUTEROL [Concomitant]
     Indication: CHRONIC OBSTRUCTIVE PULMONARY DISEASE
     Dosage: UNK
     Dates: start: 20020101, end: 20080101
  5. ZITHROMAX [Concomitant]
     Indication: INFECTION
     Dosage: UNK
     Dates: start: 20030101, end: 20090101
  6. CEPHALEXIN [Concomitant]
     Indication: INFECTION
     Dosage: UNK
     Dates: start: 20050101, end: 20090101
  7. LOPRESSOR [Concomitant]
     Indication: HYPERTENSION
     Dosage: UNK
     Dates: start: 20010101
  8. ZESTRIL [Concomitant]
     Indication: HYPERTENSION
     Dosage: UNK
     Dates: start: 20010101
  9. PREDNISONE [Concomitant]
     Dosage: UNK
     Dates: start: 20030101, end: 20090101
  10. LORTAB [Concomitant]
     Indication: PAIN
     Dosage: UNK
     Dates: start: 20010101, end: 20110101
  11. PROMETHAZINE W/ CODEINE [Concomitant]
     Indication: COUGH
     Dosage: UNK
     Dates: start: 20030101, end: 20090101
  12. PRILOSEC [Concomitant]
     Indication: HIATUS HERNIA
  13. PERCOCET [Concomitant]
     Indication: PAIN
     Dosage: UNK
     Dates: start: 20060101, end: 20080101
  14. REQUIP [Concomitant]
     Indication: RESTLESS LEGS SYNDROME
     Dosage: UNK
     Dates: start: 20060101
  15. LASIX [Concomitant]
     Indication: HYPERTENSION
     Dosage: UNK
     Dates: start: 20010101
  16. LEXAPRO [Concomitant]
     Indication: DEPRESSION
     Dosage: UNK
     Dates: start: 20040101, end: 20080101
  17. PROPOXYPHENE NAPSYLATE W/ ACETAMINOPHEN [Concomitant]
     Indication: PAIN
     Dosage: UNK
     Dates: start: 20040101, end: 20100101
  18. ACETYLSALICYLIC ACID [Concomitant]
     Indication: ANTICOAGULANT THERAPY
     Dosage: UNK
     Dates: start: 20010101
  19. CELEXA [Concomitant]
     Indication: DEPRESSION
     Dosage: UNK
     Dates: start: 20020101
  20. CHANTIX [Suspect]
     Indication: SMOKING CESSATION THERAPY
     Dosage: STARTING MONTH PACK AND CONTINUING MONTH PACKS
     Dates: start: 20070601, end: 20070901
  21. PRILOSEC [Concomitant]
     Indication: GASTROOESOPHAGEAL REFLUX DISEASE
     Dosage: UNK
     Dates: start: 20040101

REACTIONS (2)
  - ANXIETY [None]
  - DEPRESSION [None]
